FAERS Safety Report 14855448 (Version 1)
Quarter: 2018Q2

REPORT INFORMATION
  Report Type: Spontaneous
  Country: US (occurrence: US)
  Receive Date: 20180507
  Receipt Date: 20180507
  Transmission Date: 20180711
  Serious: No
  Sender: FDA-Public Use
  Company Number: US-ROCHE-1976589

PATIENT
  Age: 76 Year
  Sex: Female
  Weight: 59.93 kg

DRUGS (3)
  1. CIPROFLOXACIN. [Concomitant]
     Active Substance: CIPROFLOXACIN
     Indication: CYSTITIS
     Dosage: NO
     Route: 065
  2. ESBRIET [Suspect]
     Active Substance: PIRFENIDONE
     Indication: IDIOPATHIC PULMONARY FIBROSIS
     Dosage: YES
     Route: 065
     Dates: start: 201510
  3. BACTRIM [Concomitant]
     Active Substance: SULFAMETHOXAZOLE\TRIMETHOPRIM
     Indication: CYSTITIS
     Dosage: NO
     Route: 065

REACTIONS (10)
  - Vaginal haemorrhage [Recovered/Resolved]
  - Uterine haemorrhage [Unknown]
  - Perineal pain [Not Recovered/Not Resolved]
  - Cystitis [Recovered/Resolved]
  - Dysuria [Not Recovered/Not Resolved]
  - Bladder pain [Not Recovered/Not Resolved]
  - Abdominal pain upper [Recovered/Resolved]
  - Uterine inflammation [Unknown]
  - Proctalgia [Not Recovered/Not Resolved]
  - Hepatic infection [Unknown]

NARRATIVE: CASE EVENT DATE: 201707
